FAERS Safety Report 5590595-7 (Version None)
Quarter: 2008Q1

REPORT INFORMATION
  Report Type: 
  Country: None (occurrence: None)
  Receive Date: 20080114
  Receipt Date: 20080102
  Transmission Date: 20080703
  Serious: Yes (Hospitalization)
  Sender: FDA-Public Use
  Company Number: FR-GENENTECH-252097

PATIENT
  Sex: Male
  Weight: 86 kg

DRUGS (6)
  1. MABTHERA [Suspect]
     Indication: PEMPHIGUS
     Dosage: 375 MG/M2, UNK
     Route: 042
     Dates: start: 20071112
  2. FURADANTIN [Concomitant]
     Indication: URINARY TRACT INFECTION
  3. HYDROCORTISON [Concomitant]
     Indication: DRUG USE FOR UNKNOWN INDICATION
  4. LORAZEPAM [Concomitant]
     Indication: DRUG USE FOR UNKNOWN INDICATION
  5. EQUANIL [Concomitant]
     Indication: DRUG USE FOR UNKNOWN INDICATION
  6. MEDICATION (UNK INGREDIENT) [Concomitant]
     Indication: DRUG USE FOR UNKNOWN INDICATION

REACTIONS (5)
  - BLOOD CREATININE INCREASED [None]
  - DEHYDRATION [None]
  - PAIN IN EXTREMITY [None]
  - THROMBOCYTOPENIA [None]
  - VIRAL INFECTION [None]
